FAERS Safety Report 18613916 (Version 1)
Quarter: 2020Q4

REPORT INFORMATION
  Report Type: Spontaneous
  Country: US (occurrence: US)
  Receive Date: 20201214
  Receipt Date: 20201214
  Transmission Date: 20210114
  Serious: No
  Sender: FDA-Public Use
  Company Number: US-NOVOPROD-715788

PATIENT
  Age: 75 Year
  Sex: Female

DRUGS (1)
  1. LEVEMIR [Suspect]
     Active Substance: INSULIN DETEMIR
     Indication: TYPE 2 DIABETES MELLITUS
     Dosage: 8 IU, QD (8 UNITS ONCE A DAY)
     Route: 058
     Dates: start: 2018, end: 2019

REACTIONS (2)
  - Fat tissue increased [Not Recovered/Not Resolved]
  - Weight increased [Recovered/Resolved]
